FAERS Safety Report 18379912 (Version 3)
Quarter: 2022Q3

REPORT INFORMATION
  Report Type: Spontaneous
  Country: US (occurrence: US)
  Receive Date: 20201013
  Receipt Date: 20220808
  Transmission Date: 20221026
  Serious: No
  Sender: FDA-Public Use
  Company Number: US-VIFOR (INTERNATIONAL) INC.-VIT-2020-09729

PATIENT
  Age: 72 Year
  Sex: Male

DRUGS (1)
  1. VELTASSA [Suspect]
     Active Substance: PATIROMER
     Indication: Hyperkalaemia
     Route: 048
     Dates: start: 20200929

REACTIONS (7)
  - Arterial occlusive disease [Not Recovered/Not Resolved]
  - Protein total increased [Unknown]
  - Abdominal pain [Unknown]
  - Product dose omission issue [Unknown]
  - Off label use [Unknown]
  - Muscle spasms [Unknown]
  - COVID-19 [Recovered/Resolved]
